FAERS Safety Report 16551847 (Version 1)
Quarter: 2019Q3

REPORT INFORMATION
  Report Type: Other
  Country: GB (occurrence: GB)
  Receive Date: 20190710
  Receipt Date: 20190710
  Transmission Date: 20191004
  Serious: Yes (Other)
  Sender: FDA-Public Use
  Company Number: GB-GLENMARK PHARMACEUTICALS-2019GMK042041

PATIENT

DRUGS (3)
  1. CLENIL MODULITE [Concomitant]
     Active Substance: BECLOMETHASONE DIPROPIONATE
     Indication: PRODUCT USED FOR UNKNOWN INDICATION
     Dosage: 400 ?G, OD
     Route: 065
  2. VENTOLIN [Concomitant]
     Active Substance: ALBUTEROL SULFATE
     Indication: PRODUCT USED FOR UNKNOWN INDICATION
     Dosage: UNK UNK, PRN
     Route: 065
  3. MONTELUKAST SODIUM. [Suspect]
     Active Substance: MONTELUKAST SODIUM
     Indication: RHINITIS ALLERGIC
     Dosage: 4 MG, OD
     Route: 048
     Dates: start: 20190529, end: 20190614

REACTIONS (1)
  - Nightmare [Unknown]
